FAERS Safety Report 4630512-7 (Version None)
Quarter: 2005Q2

REPORT INFORMATION
  Report Type: 
  Country: None (occurrence: None)
  Receive Date: 20050406
  Receipt Date: 20050323
  Transmission Date: 20051028
  Serious: Yes (Hospitalization)
  Sender: FDA-Public Use
  Company Number: USA050291637

PATIENT
  Sex: Male

DRUGS (6)
  1. CIALIS [Suspect]
     Indication: ERECTILE DYSFUNCTION
     Dosage: 20 MG DAY
  2. PROPRANOLOL [Concomitant]
  3. FUROSEMIDE [Concomitant]
  4. LISINOPRIL [Concomitant]
  5. SOTALOL HCL [Concomitant]
  6. NIASPAN [Concomitant]

REACTIONS (2)
  - BURNING SENSATION [None]
  - SKIN DISCOLOURATION [None]
